FAERS Safety Report 4351412-6 (Version None)
Quarter: 2004Q2

REPORT INFORMATION
  Report Type: 
  Country: None (occurrence: None)
  Receive Date: 20040428
  Receipt Date: 20040421
  Transmission Date: 20050107
  Serious: Yes (Hospitalization)
  Sender: FDA-Public Use
  Company Number: 2004-04-1262

PATIENT
  Age: 40 Year
  Sex: Male
  Weight: 101.6057 kg

DRUGS (4)
  1. PEG-INTRON [Suspect]
     Dosage: 150 MCG QWK SUBCUTANEOUS
     Route: 058
     Dates: start: 20030905, end: 20040319
  2. REBETOL [Suspect]
     Dosage: 1200 MG QD ORAL
     Route: 048
     Dates: start: 20030905, end: 20040326
  3. TYLENOL (CAPLET) [Concomitant]
  4. MOTRIN [Concomitant]

REACTIONS (2)
  - PHLEBITIS [None]
  - PULMONARY EMBOLISM [None]
